FAERS Safety Report 8925472 (Version 1)
Quarter: 2012Q4

REPORT INFORMATION
  Report Type: 
  Country: FR (occurrence: FR)
  Receive Date: 20121126
  Receipt Date: 20121126
  Transmission Date: 20130627
  Serious: Yes (Life-Threatening, Hospitalization)
  Sender: FDA-Public Use
  Company Number: FR-ROCHE-1159549

PATIENT
  Age: 63 Year
  Sex: Female

DRUGS (13)
  1. HERCEPTIN [Suspect]
     Indication: BREAST CANCER
     Route: 042
     Dates: start: 20120913, end: 20120913
  2. EUPANTOL [Concomitant]
     Route: 048
  3. TRANXENE [Concomitant]
     Route: 048
  4. ACUPAN [Concomitant]
     Route: 042
  5. PRIMPERAN (BELGIUM) [Concomitant]
     Route: 048
  6. MYOLASTAN [Concomitant]
     Route: 048
  7. LAROXYL [Concomitant]
     Route: 048
  8. PROFENID [Concomitant]
     Route: 048
  9. OXYNORMORO [Concomitant]
     Route: 048
  10. LOVENOX [Concomitant]
     Route: 058
  11. SERESTA [Concomitant]
     Route: 048
  12. LEVOTHYROX [Concomitant]
     Route: 048
  13. DUROGESIC [Concomitant]
     Route: 062

REACTIONS (5)
  - Dyspnoea [Not Recovered/Not Resolved]
  - Tachycardia [Not Recovered/Not Resolved]
  - Malaise [Recovered/Resolved]
  - Respiratory distress [Recovered/Resolved]
  - Altered state of consciousness [Recovered/Resolved]
